FAERS Safety Report 5179386-9 (Version None)
Quarter: 2006Q4

REPORT INFORMATION
  Report Type: 
  Country: None (occurrence: None)
  Receive Date: 20061219
  Receipt Date: 20061023
  Transmission Date: 20070319
  Serious: Yes (Hospitalization)
  Sender: FDA-Public Use
  Company Number: US-ROCHE-468165

PATIENT
  Age: 61 Year
  Sex: Female
  Weight: 56.3 kg

DRUGS (3)
  1. CAPECITABINE [Suspect]
     Dosage: GIVEN 5 DAYS PER WEEK DURING RADIATION THERAPY.  ACTUAL DOSE: 1300 MG.
     Route: 065
     Dates: start: 20060925, end: 20061025
  2. CAPECITABINE [Suspect]
     Dosage: RESUMED AS OFF-PROTOCOL TREATMENT.
     Route: 065
     Dates: start: 20061026
  3. OXALIPLATIN [Suspect]
     Dosage: FREQUENCY REPORTED AS ^QWK X 5^.  ACTUAL DOSE : 80 MG.
     Route: 065
     Dates: start: 20060925, end: 20061025

REACTIONS (3)
  - DIARRHOEA [None]
  - ENTERITIS [None]
  - HYPOALBUMINAEMIA [None]
